FAERS Safety Report 7685611-2 (Version None)
Quarter: 2011Q3

REPORT INFORMATION
  Report Type: 
  Country: None (occurrence: None)
  Receive Date: 20110815
  Receipt Date: 20110815
  Transmission Date: 20111222
  Serious: Yes (Other)
  Sender: FDA-Public Use
  Company Number: None

PATIENT
  Sex: Female
  Weight: 56.6996 kg

DRUGS (2)
  1. LEVOTHYROXINE SODIUM [Suspect]
     Indication: HORMONE REPLACEMENT THERAPY
     Dosage: 1 - 75MCG / DAILY 1 DAILY MOUTH
     Route: 048
  2. LEVOTHYROXINE SODIUM [Suspect]
     Indication: THYROID DISORDER
     Dosage: 1 - 75MCG / DAILY 1 DAILY MOUTH
     Route: 048

REACTIONS (2)
  - THYROID DISORDER [None]
  - ALOPECIA [None]
